FAERS Safety Report 6496803-2 (Version None)
Quarter: 2009Q4

REPORT INFORMATION
  Report Type: 
  Country: None (occurrence: None)
  Receive Date: 20091125
  Receipt Date: 20090423
  Transmission Date: 20100525
  Serious: Yes (Hospitalization)
  Sender: FDA-Public Use
  Company Number: 2009BH005357

PATIENT
  Age: 60 Year
  Sex: Male

DRUGS (12)
  1. DIANEAL [Suspect]
     Indication: PERITONEAL DIALYSIS
     Dosage: 17 L; EVERY DAY; IP
     Route: 033
     Dates: start: 20060101
  2. DIANEAL [Suspect]
     Indication: PERITONEAL DIALYSIS
     Dosage: 2 L; EVERY DAY; IP
     Route: 033
     Dates: start: 20060101, end: 20090313
  3. CORDARONE [Concomitant]
  4. CLARITIN [Concomitant]
  5. COREG [Concomitant]
  6. WARFARIN SODIUM [Concomitant]
  7. MULTI-VITAMINS [Concomitant]
  8. DIGOXIN [Concomitant]
  9. LISINOPRIL [Concomitant]
  10. PHOSLO [Concomitant]
  11. TRICOR [Concomitant]
  12. TANDEM [Concomitant]

REACTIONS (2)
  - CATHETER SITE DISCHARGE [None]
  - CATHETER SITE INFECTION [None]
